FAERS Safety Report 5930358-3 (Version None)
Quarter: 2008Q4

REPORT INFORMATION
  Report Type: 
  Country: None (occurrence: None)
  Receive Date: 20081023
  Receipt Date: 20081008
  Transmission Date: 20090506
  Serious: Yes (Hospitalization, Other)
  Sender: FDA-Public Use
  Company Number: DSA_32525_2008

PATIENT
  Sex: Male

DRUGS (18)
  1. DILTIAZEM [Suspect]
     Indication: DRUG USE FOR UNKNOWN INDICATION
     Dosage: (DF)
  2. PLAVIX [Suspect]
     Indication: ANGINA UNSTABLE
     Dosage: 75 MG QD ORAL
     Route: 048
     Dates: start: 20040601
  3. NITROGLYCERIN [Suspect]
     Indication: ANGINA UNSTABLE
     Dosage: 1 BOTTLE PER WEEK
  4. NEXIUM [Concomitant]
  5. OSTELIN /00107901/ [Concomitant]
  6. NICORANDIL [Concomitant]
  7. CALTRATE /00108001/ [Concomitant]
  8. PANAMAX [Concomitant]
  9. QUINAPRIL [Concomitant]
  10. PRAVACHOL [Concomitant]
  11. SPIRIVA [Concomitant]
  12. ATROVENT [Concomitant]
  13. VENTOLIN [Concomitant]
  14. UREX /00032601/ [Concomitant]
  15. METOCLOPRAMIDE HYDROCHLORIDE [Concomitant]
  16. MOGADON [Concomitant]
  17. MS CONTIN [Concomitant]
  18. MORPHINE [Concomitant]

REACTIONS (2)
  - ANGINA UNSTABLE [None]
  - EMPHYSEMA [None]
